FAERS Safety Report 16710062 (Version 1)
Quarter: 2019Q3

REPORT INFORMATION
  Report Type: Spontaneous
  Country: US (occurrence: US)
  Receive Date: 20190816
  Receipt Date: 20190816
  Transmission Date: 20191004
  Serious: No
  Sender: FDA-Public Use
  Company Number: US-PACIRA-201700048

PATIENT

DRUGS (2)
  1. MARCAINE [Suspect]
     Active Substance: BUPIVACAINE HYDROCHLORIDE
     Indication: POSTOPERATIVE ANALGESIA
     Dosage: 80ML MARCAINE 0.25% ADMIX 20ML - 266 MG EXPAREL 60 ML ADMIN MARCAINE DOSE REPORTED 80ML - 200MG
     Route: 065
     Dates: start: 20170427, end: 20170427
  2. EXPAREL [Suspect]
     Active Substance: BUPIVACAINE
     Indication: POSTOPERATIVE ANALGESIA
     Dosage: 20ML - 266 MG EXPAREL ADMIXED WITH 80ML MARCAINE 0.25% AND 60 ML WAS ADMINISTERED
     Route: 065
     Dates: start: 20170427, end: 20170427

REACTIONS (1)
  - Labelled drug-drug interaction medication error [Unknown]

NARRATIVE: CASE EVENT DATE: 20170427
